FAERS Safety Report 6619499-5 (Version None)
Quarter: 2010Q1

REPORT INFORMATION
  Report Type: 
  Country: None (occurrence: None)
  Receive Date: 20100304
  Receipt Date: 20100219
  Transmission Date: 20100710
  Serious: Yes (Hospitalization)
  Sender: FDA-Public Use
  Company Number: 2010SP000541

PATIENT
  Age: 61 Year
  Sex: Female

DRUGS (3)
  1. OMNARIS [Suspect]
     Indication: MULTIPLE ALLERGIES
     Dosage: 100 UG;PRN; NASAL
     Route: 045
     Dates: end: 20100101
  2. OMNARIS [Suspect]
     Indication: MULTIPLE ALLERGIES
     Dosage: 100 UG;PRN; NASAL
     Route: 045
     Dates: start: 20100101
  3. ADVAIR DISKUS 100/50 [Concomitant]

REACTIONS (6)
  - ALLERGY TO PLANTS [None]
  - ASTHMA [None]
  - CHRONIC OBSTRUCTIVE PULMONARY DISEASE [None]
  - CONDITION AGGRAVATED [None]
  - PNEUMONIA [None]
  - PRODUCT MEASURED POTENCY ISSUE [None]
